FAERS Safety Report 25082747 (Version 1)
Quarter: 2025Q1

REPORT INFORMATION
  Report Type: Report from Study
  Country: GB (occurrence: GB)
  Receive Date: 20250317
  Receipt Date: 20250317
  Transmission Date: 20250409
  Serious: Yes (Other)
  Sender: SAMSUNG BIOEPIS
  Company Number: GB-SAMSUNG BIOEPIS-SB-2025-08938

PATIENT
  Age: 81 Year
  Sex: Female

DRUGS (1)
  1. PYZCHIVA [Suspect]
     Active Substance: USTEKINUMAB-TTWE
     Indication: Colitis ulcerative
     Route: 058
     Dates: start: 202501

REACTIONS (7)
  - Brain oedema [Unknown]
  - Headache [Unknown]
  - Confusional state [Unknown]
  - Fatigue [Unknown]
  - Skin exfoliation [Unknown]
  - Tooth infection [Unknown]
  - Eyelid ptosis [Unknown]
